FAERS Safety Report 15319666 (Version 1)
Quarter: 2018Q4

REPORT INFORMATION
  Report Type: Spontaneous
  Country: US (occurrence: US)
  Receive Date: 20180827
  Receipt Date: 20180827
  Transmission Date: 20190204
  Serious: No
  Sender: FDA-Public Use
  Company Number: US-ORPHAN EUROPE-2054245

PATIENT
  Age: 6 Month
  Sex: Female

DRUGS (1)
  1. CARBAGLU [Suspect]
     Active Substance: CARGLUMIC ACID
     Dates: start: 20171010

REACTIONS (3)
  - Nasopharyngitis [Unknown]
  - Abnormal faeces [Unknown]
  - Ammonia increased [Unknown]

NARRATIVE: CASE EVENT DATE: 201802
